FAERS Safety Report 6851460-8 (Version None)
Quarter: 2010Q3

REPORT INFORMATION
  Report Type: 
  Country: None (occurrence: None)
  Receive Date: 20100717
  Receipt Date: 20080317
  Transmission Date: 20110219
  Serious: No
  Sender: FDA-Public Use
  Company Number: US-PFIZER INC-2008005443

PATIENT
  Sex: Male
  Weight: 96.2 kg

DRUGS (10)
  1. CHANTIX [Suspect]
     Indication: SMOKING CESSATION THERAPY
     Route: 048
     Dates: start: 20071113
  2. VITAMINS [Concomitant]
  3. MINERALS NOS [Concomitant]
  4. HYDROCODONE [Concomitant]
  5. VICODIN [Concomitant]
  6. COZAAR [Concomitant]
  7. VENLAFAXINE HYDROCHLORIDE [Concomitant]
  8. TOPROL-XL [Concomitant]
  9. NORTRIPTYLINE [Concomitant]
  10. AMBIEN [Concomitant]

REACTIONS (6)
  - ABDOMINAL PAIN UPPER [None]
  - DRUG INEFFECTIVE [None]
  - MALAISE [None]
  - MEDICATION ERROR [None]
  - NAUSEA [None]
  - VOMITING [None]
